FAERS Safety Report 5819671-8 (Version None)
Quarter: 2008Q3

REPORT INFORMATION
  Report Type: 
  Country: None (occurrence: None)
  Receive Date: 20080723
  Receipt Date: 20080714
  Transmission Date: 20090109
  Serious: Yes (Hospitalization, Other)
  Sender: FDA-Public Use
  Company Number: US-PFIZER INC-2008032951

PATIENT
  Sex: Male

DRUGS (5)
  1. CELEBREX [Suspect]
     Indication: PAIN MANAGEMENT
     Route: 048
  2. CELEBREX [Suspect]
     Indication: ARTHRITIS
  3. CELEBREX [Suspect]
     Indication: ARTHRALGIA
  4. CELEBREX [Suspect]
     Indication: MUSCULOSKELETAL PAIN
  5. CELEBREX [Suspect]

REACTIONS (2)
  - CARDIOVASCULAR DISORDER [None]
  - GASTRIC DISORDER [None]
